FAERS Safety Report 15477130 (Version 2)
Quarter: 2019Q3

REPORT INFORMATION
  Report Type: Spontaneous
  Country: US (occurrence: US)
  Receive Date: 20181009
  Receipt Date: 20190725
  Transmission Date: 20191004
  Serious: No
  Sender: FDA-Public Use
  Company Number: US-PFIZER INC-2015371484

PATIENT
  Age: 85 Year
  Sex: Male
  Weight: 95.25 kg

DRUGS (2)
  1. DETROL LA [Suspect]
     Active Substance: TOLTERODINE TARTRATE
     Indication: URINARY INCONTINENCE
     Dosage: 4 MG, ONCE DAILY
     Route: 048
  2. DETROL LA [Suspect]
     Active Substance: TOLTERODINE TARTRATE
     Indication: BENIGN PROSTATIC HYPERPLASIA

REACTIONS (1)
  - Therapeutic product effect incomplete [Unknown]
